FAERS Safety Report 4865857-9 (Version None)
Quarter: 2005Q4

REPORT INFORMATION
  Report Type: 
  Country: None (occurrence: None)
  Receive Date: 20051220
  Receipt Date: 20051125
  Transmission Date: 20060501
  Serious: Yes (Other)
  Sender: FDA-Public Use
  Company Number: 2005158194

PATIENT
  Age: 16 Year
  Sex: Female

DRUGS (4)
  1. IDARUBICIN HYDROCHLORIDE SOLUTON, STERILE (IDARUBICIN HYDROCHLORIDE) [Suspect]
     Indication: ACUTE MYELOID LEUKAEMIA
     Dates: start: 20041102
  2. FLUDARABINE PHOSPHATE [Suspect]
     Indication: ACUTE MYELOID LEUKAEMIA
     Dates: start: 20041001
  3. CYTARABINE [Suspect]
     Indication: ACUTE MYELOID LEUKAEMIA
     Dates: start: 20041001
  4. GRANULOCYTE COLONY STIMULATING FACTOR (GRANULOCYTE COLONY STIMULATING [Suspect]
     Indication: ACUTE MYELOID LEUKAEMIA
     Dates: start: 20041001

REACTIONS (1)
  - INTERSTITIAL LUNG DISEASE [None]
